FAERS Safety Report 6876129-5 (Version None)
Quarter: 2010Q3

REPORT INFORMATION
  Report Type: 
  Country: None (occurrence: None)
  Receive Date: 20100727
  Receipt Date: 20100720
  Transmission Date: 20110219
  Serious: Yes (Other)
  Sender: FDA-Public Use
  Company Number: A0808553A

PATIENT
  Age: 61 Year
  Sex: Female

DRUGS (2)
  1. PROMACTA [Suspect]
     Indication: THROMBOCYTOPENIC PURPURA
     Route: 048
     Dates: end: 20100603
  2. CORTICOSTEROIDS [Concomitant]
     Indication: IDIOPATHIC THROMBOCYTOPENIC PURPURA
     Dates: start: 20081001

REACTIONS (4)
  - ACNE [None]
  - CERVIX CARCINOMA [None]
  - HAEMORRHAGE [None]
  - MALIGNANT NEOPLASM PROGRESSION [None]
